FAERS Safety Report 9064265 (Version 2)
Quarter: 2013Q1

REPORT INFORMATION
  Report Type: Spontaneous
  Country: SG (occurrence: SG)
  Receive Date: 20130128
  Receipt Date: 20130227
  Transmission Date: 20140127
  Serious: Yes (Death)
  Sender: FDA-Public Use
  Company Number: SG-JNJFOC-20130108159

PATIENT
  Sex: Female

DRUGS (1)
  1. SPORANOX [Suspect]
     Indication: CROHN^S DISEASE
     Route: 065

REACTIONS (3)
  - Crohn^s disease [Fatal]
  - Drug prescribing error [Unknown]
  - Therapeutic response unexpected [Unknown]
